FAERS Safety Report 4336533-6 (Version None)
Quarter: 2004Q2

REPORT INFORMATION
  Report Type: 
  Country: None (occurrence: None)
  Receive Date: 20040407
  Receipt Date: 20040324
  Transmission Date: 20050107
  Serious: Yes (Death)
  Sender: FDA-Public Use
  Company Number: USA040363010

PATIENT
  Age: 45 Year
  Sex: Male

DRUGS (6)
  1. STRATTERA [Suspect]
     Indication: ATTENTION DEFICIT/HYPERACTIVITY DISORDER
     Dosage: 120 MG DAY
     Dates: start: 20031113
  2. LISINOPRIL [Concomitant]
  3. INSULIN [Concomitant]
  4. LASIX [Concomitant]
  5. FLEXERIL [Concomitant]
  6. TYLENOL W/ CODEINE NO. 3 [Concomitant]

REACTIONS (8)
  - ALCOHOL USE [None]
  - CARDIOMEGALY [None]
  - CONSTIPATION [None]
  - DRUG EFFECT DECREASED [None]
  - HEPATIC CIRRHOSIS [None]
  - IMPAIRED HEALING [None]
  - IRRITABILITY [None]
  - TOXICOLOGIC TEST ABNORMAL [None]
